FAERS Safety Report 24650567 (Version 1)
Quarter: 2024Q4

REPORT INFORMATION
  Report Type: Spontaneous
  Country: US (occurrence: None)
  Receive Date: 20241122
  Receipt Date: 20241122
  Transmission Date: 20250115
  Serious: Yes (Other)
  Sender: AXSOME THERAPEUTICS, INC.
  Company Number: US-Axsome Therapeutics, Inc.-AXS202411-001926

PATIENT
  Age: 63 Year
  Sex: Female

DRUGS (1)
  1. AUVELITY [Suspect]
     Active Substance: BUPROPION HYDROCHLORIDE\DEXTROMETHORPHAN HYDROBROMIDE
     Indication: Major depression
     Route: 065
     Dates: start: 20241115, end: 20241117

REACTIONS (6)
  - Syncope [Recovered/Resolved]
  - Thirst [Recovered/Resolved]
  - Polyuria [Recovered/Resolved]
  - Feeling drunk [Recovered/Resolved]
  - Feeding disorder [Recovered/Resolved]
  - Chest pain [Recovered/Resolved]

NARRATIVE: CASE EVENT DATE: 20241115
